FAERS Safety Report 17005859 (Version 1)
Quarter: 2019Q4

REPORT INFORMATION
  Report Type: Spontaneous
  Country: US (occurrence: US)
  Receive Date: 20190926
  Receipt Date: 20190926
  Transmission Date: 20200122
  Serious: Yes (Death)
  Sender: FDA-Public Use
  Company Number: None

PATIENT
  Age: 53 Year
  Sex: Male
  Weight: 83.91 kg

DRUGS (1)
  1. DIMETHYL FUMARATE [Suspect]
     Active Substance: DIMETHYL FUMARATE
     Indication: RELAPSING-REMITTING MULTIPLE SCLEROSIS
     Route: 048
     Dates: start: 2014, end: 2019

REACTIONS (4)
  - Cardiac disorder [None]
  - Cough [None]
  - Metastatic renal cell carcinoma [None]
  - Renal cell carcinoma [None]

NARRATIVE: CASE EVENT DATE: 20190213
